FAERS Safety Report 22155951 (Version 1)
Quarter: 2023Q1

REPORT INFORMATION
  Report Type: Spontaneous
  Country: US (occurrence: US)
  Receive Date: 20230330
  Receipt Date: 20230330
  Transmission Date: 20230418
  Serious: No
  Sender: FDA-Public Use
  Company Number: US-PERRIGO-23US002891

PATIENT
  Age: 42 Year
  Sex: Female
  Weight: 68.027 kg

DRUGS (2)
  1. DEXTROMETHORPHAN HYDROBROMIDE\GUAIFENESIN [Suspect]
     Active Substance: DEXTROMETHORPHAN HYDROBROMIDE\GUAIFENESIN
     Indication: Cough
     Dosage: ONE TABLET, SINGLE
     Route: 048
     Dates: start: 20230228, end: 20230228
  2. DEXTROMETHORPHAN HYDROBROMIDE\GUAIFENESIN [Suspect]
     Active Substance: DEXTROMETHORPHAN HYDROBROMIDE\GUAIFENESIN
     Indication: Upper respiratory tract congestion

REACTIONS (3)
  - Panic attack [Recovered/Resolved]
  - Anxiety [Recovered/Resolved]
  - Dizziness [Recovered/Resolved]

NARRATIVE: CASE EVENT DATE: 20230228
